FAERS Safety Report 21929201 (Version 2)
Quarter: 2023Q1

REPORT INFORMATION
  Report Type: Report from Study
  Country: US (occurrence: US)
  Receive Date: 20230131
  Receipt Date: 20230302
  Transmission Date: 20230418
  Serious: Yes (Hospitalization)
  Sender: FDA-Public Use
  Company Number: US-BEH-2023154528

PATIENT
  Age: 41 Year
  Sex: Female
  Weight: 86.168 kg

DRUGS (4)
  1. HIZENTRA [Suspect]
     Active Substance: HUMAN IMMUNOGLOBULIN G
     Indication: Primary immunodeficiency syndrome
     Dosage: 10 GRAM, QW
     Route: 058
     Dates: start: 20230113
  2. HIZENTRA [Suspect]
     Active Substance: HUMAN IMMUNOGLOBULIN G
     Indication: Humoral immune defect
     Dosage: UNK
     Route: 058
     Dates: start: 20230113
  3. HIZENTRA [Suspect]
     Active Substance: HUMAN IMMUNOGLOBULIN G
     Dosage: UNK
     Route: 058
     Dates: start: 20230113
  4. HIZENTRA [Suspect]
     Active Substance: HUMAN IMMUNOGLOBULIN G
     Dosage: UNK
     Route: 065

REACTIONS (16)
  - Infusion site pruritus [Recovered/Resolved]
  - Infusion site erythema [Recovered/Resolved]
  - Palmar erythema [Not Recovered/Not Resolved]
  - Hyperhidrosis [Unknown]
  - Chest pain [Not Recovered/Not Resolved]
  - Oral pain [Not Recovered/Not Resolved]
  - Feeling hot [Recovered/Resolved]
  - Palpitations [Recovered/Resolved]
  - Headache [Unknown]
  - Palpitations [Recovered/Resolved]
  - Chest pain [Unknown]
  - Headache [Unknown]
  - Palpitations [Unknown]
  - Neck pain [Not Recovered/Not Resolved]
  - No adverse event [Unknown]
  - Therapy interrupted [Unknown]

NARRATIVE: CASE EVENT DATE: 20230101
